FAERS Safety Report 8612439-9 (Version None)
Quarter: 2012Q3

REPORT INFORMATION
  Report Type: 
  Country: None (occurrence: None)
  Receive Date: 20120822
  Receipt Date: 20120814
  Transmission Date: 20120928
  Serious: Yes (Hospitalization)
  Sender: FDA-Public Use
  Company Number: US-US-EMD SERONO, INC.-7020093

PATIENT
  Sex: Female
  Weight: 61 kg

DRUGS (10)
  1. REBIF [Suspect]
     Indication: MULTIPLE SCLEROSIS
     Dates: start: 20060717
  2. LEVOTHYROXINE SODIUM [Concomitant]
     Indication: PRODUCT USED FOR UNKNOWN INDICATION
  3. ARICEPT [Concomitant]
     Indication: MEMORY IMPAIRMENT
  4. NUVIGIL [Concomitant]
     Indication: ASTHENIA
  5. GELNICUE [Concomitant]
     Indication: PRODUCT USED FOR UNKNOWN INDICATION
     Route: 061
  6. RITALIN [Concomitant]
     Indication: PRODUCT USED FOR UNKNOWN INDICATION
     Dates: end: 20100928
  7. VITAMIN B-12 [Concomitant]
     Indication: PRODUCT USED FOR UNKNOWN INDICATION
  8. METHENAMINE HIPPURATE [Concomitant]
     Indication: PROPHYLAXIS URINARY TRACT INFECTION
  9. MECLIZINE [Concomitant]
     Indication: DIZZINESS
  10. FLONASE [Concomitant]
     Indication: MULTIPLE ALLERGIES

REACTIONS (6)
  - ARTERIOVENOUS MALFORMATION [None]
  - HYDROCEPHALUS [None]
  - WHITE BLOOD CELL COUNT INCREASED [None]
  - PYREXIA [None]
  - CEREBROVASCULAR ACCIDENT [None]
  - THROMBOSIS [None]
